FAERS Safety Report 10154829 (Version 1)
Quarter: 2014Q2

REPORT INFORMATION
  Report Type: Spontaneous
  Country: GB (occurrence: None)
  Receive Date: 20140502
  Receipt Date: 20140502
  Transmission Date: 20141212
  Serious: Yes (Other)
  Sender: FDA-Public Use
  Company Number: SYM-2014-20268

PATIENT
  Age: 69 Year
  Sex: Female

DRUGS (1)
  1. DILTIAZEM HYDROCHLORIDE (DILTIAZEM HYDROCHLORIDE) [Suspect]
     Indication: PRODUCT USED FOR UNKNOWN INDICATION

REACTIONS (3)
  - Muscular weakness [None]
  - Sialoadenitis [None]
  - Hearing impaired [None]
